FAERS Safety Report 16971494 (Version 4)
Quarter: 2020Q1

REPORT INFORMATION
  Report Type: Report from Study
  Country: CO (occurrence: CO)
  Receive Date: 20191029
  Receipt Date: 20200122
  Transmission Date: 20200409
  Serious: Yes (Other)
  Sender: FDA-Public Use
  Company Number: PHHY2016CO100792

PATIENT
  Age: 37 Year
  Sex: Male
  Weight: 58 kg

DRUGS (8)
  1. TASIGNA [Suspect]
     Active Substance: NILOTINIB
     Dosage: 600 MG, QD
     Route: 048
  2. TASIGNA [Suspect]
     Active Substance: NILOTINIB
     Dosage: 600 MG, QD
     Route: 048
  3. TASIGNA [Suspect]
     Active Substance: NILOTINIB
     Dosage: 300 MG, BID
     Route: 048
  4. TASIGNA [Suspect]
     Active Substance: NILOTINIB
     Indication: CHRONIC MYELOID LEUKAEMIA
     Dosage: 2 DF
     Route: 048
  5. TASIGNA [Suspect]
     Active Substance: NILOTINIB
     Dosage: 2 DF, Q12H
     Route: 048
     Dates: start: 20151118, end: 201702
  6. TASIGNA [Suspect]
     Active Substance: NILOTINIB
     Dosage: 800 MG, QD
     Route: 048
  7. TASIGNA [Suspect]
     Active Substance: NILOTINIB
     Dosage: 300 MG, QD (DAILY)
     Route: 048
  8. TASIGNA [Suspect]
     Active Substance: NILOTINIB
     Dosage: 800 MG (400 MG IN THE MORNING AND 400 MG IN THE AFTERNOON)
     Route: 048

REACTIONS (19)
  - Dry mouth [Unknown]
  - Night sweats [Unknown]
  - Constipation [Unknown]
  - Headache [Unknown]
  - Haemorrhoids [Not Recovered/Not Resolved]
  - Taste disorder [Unknown]
  - Malaise [Unknown]
  - Arrhythmia [Not Recovered/Not Resolved]
  - Gastrointestinal disorder [Unknown]
  - Palpitations [Unknown]
  - Dry skin [Unknown]
  - Epistaxis [Unknown]
  - Inappropriate schedule of product administration [Unknown]
  - Fluid retention [Unknown]
  - Vomiting [Unknown]
  - Platelet count decreased [Unknown]
  - Pain in extremity [Unknown]
  - General physical health deterioration [Unknown]
  - Hypertension [Unknown]

NARRATIVE: CASE EVENT DATE: 20170318
